FAERS Safety Report 6125480-5 (Version None)
Quarter: 2009Q1

REPORT INFORMATION
  Report Type: 
  Country: None (occurrence: None)
  Receive Date: 20090320
  Receipt Date: 20090318
  Transmission Date: 20090719
  Serious: Yes (Death)
  Sender: FDA-Public Use
  Company Number: PHEH2009US02772

PATIENT
  Sex: Female

DRUGS (3)
  1. ZOMETA [Suspect]
     Indication: MALIGNANT MELANOMA
     Dosage: 4 MG, QMO
     Dates: start: 20090224
  2. ZOMETA [Suspect]
     Indication: METASTASES TO CENTRAL NERVOUS SYSTEM
  3. ZOMETA [Suspect]
     Indication: BONE NEOPLASM MALIGNANT

REACTIONS (1)
  - DEATH [None]
